FAERS Safety Report 8855503 (Version 1)
Quarter: 2012Q4

REPORT INFORMATION
  Report Type: 
  Country: US (occurrence: US)
  Receive Date: 20121023
  Receipt Date: 20121023
  Transmission Date: 20130627
  Serious: No
  Sender: FDA-Public Use
  Company Number: US-AMGEN-USASP2012059565

PATIENT
  Age: 65 Year
  Sex: Female
  Weight: 74 kg

DRUGS (9)
  1. ENBREL [Suspect]
     Indication: PSORIATIC ARTHROPATHY
     Dosage: 50 mg, qwk
     Route: 058
  2. BENICAR [Concomitant]
     Dosage: 20 mg, UNK
     Route: 048
  3. KOMBIGLYZE [Concomitant]
     Dosage: 2.5-1000
     Route: 048
  4. FISH OIL CONCENTRATE [Concomitant]
     Dosage: UNK
     Route: 048
  5. ARMOUR THYROID [Concomitant]
     Dosage: 120 mg, UNK
     Route: 048
  6. HUMIRA [Concomitant]
     Dosage: 40 mg/0.8, UNK
     Route: 058
  7. VITAMIN C                          /00008001/ [Concomitant]
     Dosage: 500 mg, UNK
     Route: 048
  8. CALCIUM [Concomitant]
     Dosage: 500 UNK, UNK
     Route: 048
  9. MULTICAPS [Concomitant]
     Dosage: UNK
     Route: 048

REACTIONS (1)
  - Drug ineffective [Unknown]
